FAERS Safety Report 23497973 (Version 1)
Quarter: 2024Q1

REPORT INFORMATION
  Report Type: Spontaneous
  Country: US (occurrence: None)
  Receive Date: 20240207
  Receipt Date: 20240207
  Transmission Date: 20240410
  Serious: No
  Sender: FDA-Public Use
  Company Number: US-ROCHE-3312283

PATIENT
  Sex: Male
  Weight: 95.34 kg

DRUGS (4)
  1. XOLAIR [Suspect]
     Active Substance: OMALIZUMAB
     Indication: Asthma
     Dosage: 2 SHOTS TOTAL; 150MG AND 150MG ;ONGOING: NO
     Route: 058
     Dates: start: 202212, end: 202302
  2. XOLAIR [Suspect]
     Active Substance: OMALIZUMAB
     Dosage: 3 SHOTS TOTAL; 150MG, 150MG, AND 75MG ;ONGOING: YES
     Route: 058
     Dates: start: 202302
  3. AMLODIPINE [Concomitant]
     Active Substance: AMLODIPINE BESYLATE
     Indication: Blood pressure measurement
     Dates: start: 2005
  4. RAMIPRIL [Concomitant]
     Active Substance: RAMIPRIL
     Indication: Blood pressure measurement
     Dates: start: 2005

REACTIONS (3)
  - Dizziness [Recovering/Resolving]
  - Abdominal pain upper [Not Recovered/Not Resolved]
  - Vertigo [Unknown]

NARRATIVE: CASE EVENT DATE: 20230309
